FAERS Safety Report 5974291-X (Version None)
Quarter: 2008Q4

REPORT INFORMATION
  Report Type: 
  Country: None (occurrence: None)
  Receive Date: 20081128
  Receipt Date: 20081113
  Transmission Date: 20090506
  Serious: Yes (Other)
  Sender: FDA-Public Use
  Company Number: 2008S1011429

PATIENT
  Age: 72 Year
  Sex: Female

DRUGS (1)
  1. PHOSPHOSODA FLAVOR NOT SPECIFIED [Suspect]
     Indication: COLONOSCOPY
     Dosage: 45 MG;BID;PO
     Route: 048
     Dates: start: 20060401, end: 20060401

REACTIONS (7)
  - GASTROOESOPHAGEAL REFLUX DISEASE [None]
  - HYPERTENSION [None]
  - MALAISE [None]
  - NAUSEA [None]
  - NEPHROGENIC ANAEMIA [None]
  - RENAL FAILURE [None]
  - VOMITING [None]
